FAERS Safety Report 8015561-3 (Version None)
Quarter: 2011Q4

REPORT INFORMATION
  Report Type: 
  Country: None (occurrence: None)
  Receive Date: 20111230
  Receipt Date: 20111228
  Transmission Date: 20120403
  Serious: No
  Sender: FDA-Public Use
  Company Number: US-TEVA-315274USA

PATIENT
  Sex: Female
  Weight: 68.1 kg

DRUGS (3)
  1. PRILOSEC [Concomitant]
     Indication: DYSPEPSIA
  2. AMBIEN [Concomitant]
     Indication: SLEEP DISORDER
  3. PLAN B ONE-STEP [Suspect]
     Indication: POST COITAL CONTRACEPTION
     Dosage: 1.5 MILLIGRAM;
     Route: 048
     Dates: start: 20111101, end: 20111101

REACTIONS (3)
  - PREGNANCY AFTER POST COITAL CONTRACEPTION [None]
  - DRUG INEFFECTIVE [None]
  - VAGINAL HAEMORRHAGE [None]
